FAERS Safety Report 13739466 (Version 1)
Quarter: 2017Q3

REPORT INFORMATION
  Report Type: Spontaneous
  Country: DE (occurrence: DE)
  Receive Date: 20170710
  Receipt Date: 20170710
  Transmission Date: 20171127
  Serious: Yes (Other)
  Sender: FDA-Public Use
  Company Number: GXKR2017DE003554

PATIENT
  Sex: Female

DRUGS (2)
  1. CITALOPRAM [Suspect]
     Active Substance: CITALOPRAM HYDROBROMIDE
     Indication: DEPRESSION
     Dosage: 10 MG, ONCE DAILY IN THE MORNING
     Route: 048
     Dates: start: 2009
  2. AMLODIPINE [Concomitant]
     Active Substance: AMLODIPINE BESYLATE
     Indication: PRODUCT USED FOR UNKNOWN INDICATION
     Route: 065

REACTIONS (9)
  - Sleep disorder [Unknown]
  - Visual impairment [Unknown]
  - Fatigue [Unknown]
  - Ocular discomfort [Unknown]
  - Blood pressure increased [Unknown]
  - Muscular weakness [Unknown]
  - Tremor [Unknown]
  - Palpitations [Unknown]
  - Head discomfort [Unknown]
